FAERS Safety Report 21018816 (Version 2)
Quarter: 2022Q3

REPORT INFORMATION
  Report Type: Spontaneous
  Country: TR (occurrence: TR)
  Receive Date: 20220628
  Receipt Date: 20220813
  Transmission Date: 20221027
  Serious: Yes (Other)
  Sender: FDA-Public Use
  Company Number: TR-NOVARTISPH-NVSC2022TR147680

PATIENT
  Age: 47 Year
  Sex: Male

DRUGS (2)
  1. TROPICAMIDE [Suspect]
     Active Substance: TROPICAMIDE
     Indication: Pupil dilation procedure
     Dosage: UNK
     Route: 061
  2. MYDFRIN [Suspect]
     Active Substance: PHENYLEPHRINE HYDROCHLORIDE
     Indication: Pupil dilation procedure
     Dosage: UNK
     Route: 061

REACTIONS (2)
  - Detachment of retinal pigment epithelium [Unknown]
  - Condition aggravated [Unknown]
